FAERS Safety Report 18239702 (Version 5)
Quarter: 2020Q4

REPORT INFORMATION
  Report Type: Report from Study
  Country: CA (occurrence: CA)
  Receive Date: 20200907
  Receipt Date: 20201214
  Transmission Date: 20210113
  Serious: Yes (Death, Hospitalization, Other)
  Sender: FDA-Public Use
  Company Number: CA-BRISTOL-MYERS SQUIBB COMPANY-BMS-2020-071929

PATIENT
  Age: 56 Year
  Sex: Male

DRUGS (3)
  1. IPILIMUMAB [Suspect]
     Active Substance: IPILIMUMAB
     Indication: RENAL CELL CARCINOMA
     Dosage: 1 MILLIGRAM/KILOGRAM, Q3WK
     Route: 042
     Dates: start: 20200812, end: 20200812
  2. NIVOLUMAB [Concomitant]
     Active Substance: NIVOLUMAB
     Indication: RENAL CELL CARCINOMA
     Dosage: 460 MILLIGRAM
     Route: 042
     Dates: start: 20191105, end: 20200812
  3. LEVOTHYROXINE. [Interacting]
     Active Substance: LEVOTHYROXINE
     Indication: PRODUCT USED FOR UNKNOWN INDICATION
     Route: 065

REACTIONS (2)
  - Immune-mediated enterocolitis [Fatal]
  - Drug interaction [Unknown]

NARRATIVE: CASE EVENT DATE: 20200828
